FAERS Safety Report 23083096 (Version 1)
Quarter: 2023Q4

REPORT INFORMATION
  Report Type: Spontaneous
  Country: US (occurrence: None)
  Receive Date: 20231017
  Receipt Date: 20231017
  Transmission Date: 20240109
  Serious: Yes (Hospitalization)
  Sender: FDA-Public Use
  Company Number: None

PATIENT
  Age: 65 Year
  Sex: Male
  Weight: 62 kg

DRUGS (1)
  1. EMPAGLIFLOZIN [Suspect]
     Active Substance: EMPAGLIFLOZIN
     Dosage: FREQUENCY : DAILY;?
     Route: 048
     Dates: start: 20220310, end: 20221014

REACTIONS (7)
  - Hallucination, visual [None]
  - Aspartate aminotransferase increased [None]
  - Acute kidney injury [None]
  - Starvation ketoacidosis [None]
  - Delirium [None]
  - Acute kidney injury [None]
  - Alanine aminotransferase increased [None]

NARRATIVE: CASE EVENT DATE: 20221010
